FAERS Safety Report 4529950-2 (Version None)
Quarter: 2004Q4

REPORT INFORMATION
  Report Type: 
  Country: None (occurrence: None)
  Receive Date: 20041215
  Receipt Date: 20041215
  Transmission Date: 20050328
  Serious: Yes (Hospitalization)
  Sender: FDA-Public Use
  Company Number: None

PATIENT
  Sex: Male
  Weight: 76.6579 kg

DRUGS (2)
  1. WELLBUTRIN 300 MG AM [Suspect]
     Indication: ATTENTION DEFICIT/HYPERACTIVITY DISORDER
     Dosage: 300 MG (2) Q AM
  2. WELLBUTRIN 300 MG AM [Suspect]
     Indication: MAJOR DEPRESSION
     Dosage: 300 MG (2) Q AM

REACTIONS (1)
  - CLONIC CONVULSION [None]
